FAERS Safety Report 8770857 (Version 1)
Quarter: 2012Q4

REPORT INFORMATION
  Report Type: 
  Country: US (occurrence: US)
  Receive Date: 20120906
  Receipt Date: 20120906
  Transmission Date: 20130627
  Serious: No
  Sender: FDA-Public Use
  Company Number: US-BAYER-2012-091165

PATIENT
  Age: 28 Year
  Sex: Female
  Weight: 81.63 kg

DRUGS (4)
  1. YAZ [Suspect]
  2. NITROFURANTOIN [Concomitant]
     Dosage: 100 mg, UNK
     Route: 048
  3. IBUPROFEN [Concomitant]
  4. HEAT COMPRESS [Concomitant]

REACTIONS (1)
  - Thrombophlebitis superficial [None]
